FAERS Safety Report 9097336 (Version 1)
Quarter: 2013Q1

REPORT INFORMATION
  Report Type: Spontaneous
  Country: US (occurrence: US)
  Receive Date: 20130212
  Receipt Date: 20130212
  Transmission Date: 20140127
  Serious: Yes (Hospitalization, Other)
  Sender: FDA-Public Use
  Company Number: US-009507513-1302USA003839

PATIENT
  Age: 41 None
  Sex: Male

DRUGS (4)
  1. JANUVIA [Suspect]
     Dosage: 1 DF, QD
     Route: 048
     Dates: start: 20110310
  2. METFORMIN [Concomitant]
  3. LISINOPRIL [Concomitant]
  4. GLIPIZIDE XL [Concomitant]

REACTIONS (3)
  - Large intestine polyp [Recovered/Resolved]
  - Colectomy [Recovered/Resolved]
  - Medication residue present [Unknown]
